FAERS Safety Report 7791988-X (Version None)
Quarter: 2011Q4

REPORT INFORMATION
  Report Type: 
  Country: None (occurrence: None)
  Receive Date: 20111003
  Receipt Date: 20110929
  Transmission Date: 20120403
  Serious: Yes (Death)
  Sender: FDA-Public Use
  Company Number: JP-ELI_LILLY_AND_COMPANY-JP201109008128

PATIENT
  Sex: Female

DRUGS (2)
  1. ADCIRCA [Suspect]
     Dosage: 10 MG, UNK
     Route: 048
     Dates: start: 20110421
  2. ADCIRCA [Suspect]
     Indication: PULMONARY HYPERTENSION
     Dosage: 5 MG, UNK
     Route: 048
     Dates: start: 20110418, end: 20110420

REACTIONS (2)
  - OFF LABEL USE [None]
  - PULMONARY HYPERTENSION [None]
